FAERS Safety Report 4855425-7 (Version None)
Quarter: 2005Q4

REPORT INFORMATION
  Report Type: 
  Country: None (occurrence: None)
  Receive Date: 20051125
  Receipt Date: 20050322
  Transmission Date: 20060501
  Serious: Yes (Other)
  Sender: FDA-Public Use
  Company Number: US-JNJFOC-20050203179

PATIENT
  Age: 43 Year
  Sex: Male
  Weight: 77.1115 kg

DRUGS (3)
  1. LEVAQUIN [Suspect]
     Indication: BRONCHITIS
     Dosage: 750 MG, ORAL
     Route: 048
  2. CRESTOR (CHOLESTEROL- AND TRIGLYCERIDE REDUCERS) [Concomitant]
  3. ASPIRIN [Concomitant]

REACTIONS (2)
  - ANAPHYLACTOID REACTION [None]
  - RASH [None]
